FAERS Safety Report 22619677 (Version 1)
Quarter: 2023Q2

REPORT INFORMATION
  Report Type: Spontaneous
  Country: US (occurrence: None)
  Receive Date: 20230616
  Receipt Date: 20230616
  Transmission Date: 20230722
  Serious: Yes (Hospitalization)
  Sender: FDA-Public Use
  Company Number: None

PATIENT
  Age: 43 Year
  Sex: Male
  Weight: 70.9 kg

DRUGS (3)
  1. CEFTRIAXONE [Suspect]
     Active Substance: CEFTRIAXONE
     Indication: Lyme carditis
     Dosage: FREQUENCY : DAILY;?
     Route: 041
     Dates: start: 20230531, end: 20230610
  2. COLCHICINE [Concomitant]
     Active Substance: COLCHICINE
     Dates: start: 20230601, end: 20230613
  3. CLOPIDOGREL [Concomitant]
     Active Substance: CLOPIDOGREL BISULFATE
     Dates: start: 20230601, end: 20230614

REACTIONS (4)
  - Rash morbilliform [None]
  - Drug reaction with eosinophilia and systemic symptoms [None]
  - Hypertransaminasaemia [None]
  - Viral rash [None]

NARRATIVE: CASE EVENT DATE: 20230610
